FAERS Safety Report 23999830 (Version 3)
Quarter: 2024Q3

REPORT INFORMATION
  Report Type: Spontaneous
  Country: IT (occurrence: IT)
  Receive Date: 20240621
  Receipt Date: 20240717
  Transmission Date: 20241016
  Serious: Yes (Death, Life-Threatening, Other)
  Sender: Waylis
  Company Number: IT-MLMSERVICE-20240610-PI089806-00119-2

PATIENT
  Age: 31 Year
  Sex: Male

DRUGS (9)
  1. DIAZEPAM [Suspect]
     Active Substance: DIAZEPAM
     Indication: Product used for unknown indication
  2. METHADONE [Suspect]
     Active Substance: METHADONE HYDROCHLORIDE
     Indication: Drug dependence
  3. METHADONE [Suspect]
     Active Substance: METHADONE HYDROCHLORIDE
     Indication: Drug withdrawal maintenance therapy
  4. FLUBROMAZEPAM [Suspect]
     Active Substance: FLUBROMAZEPAM
     Indication: Product used for unknown indication
  5. ALCOHOL [Suspect]
     Active Substance: ALCOHOL
     Indication: Product used for unknown indication
  6. U-47700 [Suspect]
     Active Substance: U-47700
     Indication: Product used for unknown indication
  7. OXAZEPAM [Suspect]
     Active Substance: OXAZEPAM
     Indication: Product used for unknown indication
  8. TEMAZEPAM [Suspect]
     Active Substance: TEMAZEPAM
     Indication: Product used for unknown indication
  9. DULOXETINE [Concomitant]
     Active Substance: DULOXETINE
     Indication: Product used for unknown indication

REACTIONS (19)
  - Haemorrhage subcutaneous [Unknown]
  - Hepatic steatosis [Fatal]
  - Connective tissue disorder [Unknown]
  - Brain compression [Fatal]
  - Hepatomegaly [Fatal]
  - Injection site haematoma [Unknown]
  - Toxicity to various agents [Fatal]
  - Brain oedema [Fatal]
  - Cardiac steatosis [Fatal]
  - Pulmonary alveolar haemorrhage [Fatal]
  - Kidney congestion [Fatal]
  - Lung hyperinflation [Fatal]
  - Left ventricular dilatation [Fatal]
  - Pulmonary oedema [Fatal]
  - Respiratory depression [Fatal]
  - Myocardial fibrosis [Fatal]
  - Drug abuse [Fatal]
  - Drug interaction [Fatal]
  - Cardiac steatosis [Fatal]
